FAERS Safety Report 9397614 (Version 1)
Quarter: 2013Q3

REPORT INFORMATION
  Report Type: Spontaneous
  Country: US (occurrence: None)
  Receive Date: 20130711
  Receipt Date: 20130711
  Transmission Date: 20140515
  Serious: Yes (Hospitalization)
  Sender: FDA-Public Use
  Company Number: None

PATIENT
  Age: 52 Year
  Sex: Female
  Weight: 70 kg

DRUGS (2)
  1. GEMCITABINE [Suspect]
     Indication: OVARIAN CANCER
     Dosage: GEMCITABINE WEEKLY IV
     Route: 042
     Dates: start: 20130625, end: 20130709
  2. PANITUMUMAB [Suspect]
     Indication: OVARIAN CANCER
     Dosage: PANITUMUMAB WEEKLY IV
     Route: 042
     Dates: start: 20130625, end: 20130709

REACTIONS (13)
  - Abdominal pain lower [None]
  - Abdominal distension [None]
  - Vomiting [None]
  - Muscle spasms [None]
  - Diarrhoea [None]
  - Faeces discoloured [None]
  - Headache [None]
  - Dehydration [None]
  - Chills [None]
  - Urine output decreased [None]
  - Small intestinal obstruction [None]
  - Renal failure acute [None]
  - Electrolyte imbalance [None]
